FAERS Safety Report 5528978-3 (Version None)
Quarter: 2007Q4

REPORT INFORMATION
  Report Type: 
  Country: None (occurrence: None)
  Receive Date: 20071126
  Receipt Date: 20071106
  Transmission Date: 20080405
  Serious: Yes (Congenital Anomaly)
  Sender: FDA-Public Use
  Company Number: CHROB-E-20070008

PATIENT
  Sex: Male

DRUGS (1)
  1. NAVELBINE [Suspect]

REACTIONS (4)
  - DRUG EXPOSURE DURING PREGNANCY [None]
  - HEART DISEASE CONGENITAL [None]
  - RIGHT VENTRICULAR HYPERTROPHY [None]
  - UNSPECIFIED AGENT EXPOSURE DURING PREGNANCY [None]
